FAERS Safety Report 7029360 (Version 2)
Quarter: 2020Q3

REPORT INFORMATION
  Report Type: Report from Study
  Country: BR (occurrence: BR)
  Receive Date: 20090622
  Receipt Date: 20090721
  Transmission Date: 20201104
  Serious: Yes (Hospitalization, Other)
  Sender: FDA-Public Use
  Company Number: BR-ROCHE-637254

PATIENT
  Age: 76 Year
  Sex: Female
  Weight: 69.5 kg

DRUGS (2)
  1. IBANDRONIC ACID. [Suspect]
     Active Substance: IBANDRONIC ACID
     Indication: OSTEOPOROSIS
     Route: 048
     Dates: start: 2006
  2. OSCAL D [Concomitant]
     Active Substance: CALCIUM CARBONATE\CHOLECALCIFEROL
     Indication: OSTEOPOROSIS
     Route: 048
     Dates: start: 1999

REACTIONS (5)
  - Humerus fracture [Recovered/Resolved]
  - Pain [Recovered/Resolved]
  - Primary biliary cholangitis [Recovering/Resolving]
  - Therapeutic response decreased [Unknown]
  - Fall [None]

NARRATIVE: CASE EVENT DATE: 20070101
